FAERS Safety Report 23472775 (Version 2)
Quarter: 2024Q1

REPORT INFORMATION
  Report Type: Spontaneous
  Country: AU (occurrence: AU)
  Receive Date: 20240202
  Receipt Date: 20240205
  Transmission Date: 20240410
  Serious: Yes (Other)
  Sender: FDA-Public Use
  Company Number: AU-TEVA-VS-3151621

PATIENT
  Sex: Female

DRUGS (3)
  1. DESVENLAFAXINE [Suspect]
     Active Substance: DESVENLAFAXINE
     Route: 065
  2. AMITRIPTYLINE [Suspect]
     Active Substance: AMITRIPTYLINE
     Route: 065
  3. DIAZEPAM [Suspect]
     Active Substance: DIAZEPAM
     Route: 065

REACTIONS (2)
  - Arteriosclerosis [Unknown]
  - Toxicity to various agents [Unknown]
